FAERS Safety Report 9750105 (Version 2)
Quarter: 2013Q4

REPORT INFORMATION
  Report Type: Spontaneous
  Country: US (occurrence: US)
  Receive Date: 20131212
  Receipt Date: 20131212
  Transmission Date: 20140711
  Serious: No
  Sender: FDA-Public Use
  Company Number: US-GILEAD-US-CVT-090507

PATIENT
  Age: 81 Year
  Sex: Male

DRUGS (17)
  1. RANEXA [Suspect]
     Indication: PRODUCT USED FOR UNKNOWN INDICATION
     Route: 048
     Dates: start: 20090718, end: 20090731
  2. RANEXA [Suspect]
     Route: 048
     Dates: start: 20090801, end: 20090803
  3. RANEXA [Suspect]
     Route: 048
     Dates: start: 20090804, end: 20090808
  4. RANEXA [Suspect]
     Route: 048
     Dates: start: 20090809
  5. NORVASC                            /00972401/ [Concomitant]
     Route: 048
  6. ATENOLOL [Concomitant]
     Route: 048
  7. IMDUR [Concomitant]
  8. COLACE [Concomitant]
     Route: 048
  9. PLAVIX [Concomitant]
     Route: 048
  10. PRILOSEC [Concomitant]
     Route: 048
  11. ASPIRIN                            /00002701/ [Concomitant]
  12. ACETAMINOPHEN [Concomitant]
     Route: 048
  13. VITAMINS [Concomitant]
     Route: 048
  14. ANTIOXIDANT [Concomitant]
  15. MAGNESIUM                          /00123201/ [Concomitant]
     Route: 048
  16. TRAMADOL                           /00599201/ [Concomitant]
     Route: 048
  17. KETOKONAZOL [Concomitant]
     Route: 061

REACTIONS (4)
  - Constipation [Not Recovered/Not Resolved]
  - Dry mouth [Recovered/Resolved]
  - Abdominal discomfort [Recovered/Resolved]
  - Nausea [Not Recovered/Not Resolved]
